FAERS Safety Report 15835145 (Version 1)
Quarter: 2019Q1

REPORT INFORMATION
  Report Type: Spontaneous
  Country: US (occurrence: US)
  Receive Date: 20190116
  Receipt Date: 20190116
  Transmission Date: 20190417
  Serious: No
  Sender: FDA-Public Use
  Company Number: US-MYLANLABS-2018M1094382

PATIENT

DRUGS (1)
  1. LEVOTHYROXINE SODIUM TABLETS, USP [Suspect]
     Active Substance: LEVOTHYROXINE SODIUM
     Indication: HYPOTHYROIDISM
     Dosage: 112 UNKNOWN UNITS, UNK
     Route: 048
     Dates: start: 20181127

REACTIONS (3)
  - Nausea [Recovering/Resolving]
  - Wrong technique in product usage process [Not Recovered/Not Resolved]
  - Dizziness [Recovering/Resolving]
